FAERS Safety Report 9254802 (Version 2)
Quarter: 2013Q2

REPORT INFORMATION
  Report Type: Spontaneous
  Country: DE (occurrence: None)
  Receive Date: 20130422
  Receipt Date: 20130425
  Transmission Date: 20140414
  Serious: Yes (Hospitalization)
  Sender: FDA-Public Use
  Company Number: 1304-504

PATIENT
  Age: 80 Year
  Sex: Female

DRUGS (1)
  1. EYLEA [Suspect]
     Indication: AGE-RELATED MACULAR DEGENERATION
     Route: 031
     Dates: start: 20130411, end: 20130411

REACTIONS (10)
  - Necrotising retinitis [None]
  - Iris adhesions [None]
  - Anterior chamber fibrin [None]
  - Retinal ischaemia [None]
  - Retinal haemorrhage [None]
  - Papilloedema [None]
  - Vitreous opacities [None]
  - Enterococcal infection [None]
  - Pseudomonas infection [None]
  - Drug hypersensitivity [None]
